FAERS Safety Report 20848459 (Version 1)
Quarter: 2022Q2

REPORT INFORMATION
  Report Type: Spontaneous
  Country: US (occurrence: US)
  Receive Date: 20220519
  Receipt Date: 20220519
  Transmission Date: 20220721
  Serious: Yes (Hospitalization)
  Sender: FDA-Public Use
  Company Number: US-MYLANLABS-2022M1036725

PATIENT
  Age: 53 Year
  Sex: Female

DRUGS (4)
  1. FENTANYL [Suspect]
     Active Substance: FENTANYL
     Indication: Product used for unknown indication
     Dosage: UNK (THE PATIENT HAD BEGUN ABUSING HER FENTANYL PATCHES VIA TWO ROUTES: CHEWING)
  2. FENTANYL [Suspect]
     Active Substance: FENTANYL
     Dosage: UNK (THE PATIENT HAD BEGUN ABUSING HER FENTANYL PATCHES VIA TWO ROUTES: HEATING FOLLOWED BY VAPOR IN
  3. FENTANYL [Suspect]
     Active Substance: FENTANYL
     Dosage: UNK
     Route: 062
  4. CANNABIS SATIVA SUBSP. INDICA TOP [Concomitant]
     Active Substance: CANNABIS SATIVA SUBSP. INDICA TOP
     Indication: Product used for unknown indication
     Dosage: UNK
     Route: 065

REACTIONS (10)
  - Psychotic disorder [Recovering/Resolving]
  - Respiratory symptom [Recovered/Resolved]
  - Lacrimation increased [Recovered/Resolved]
  - Drug dependence [Unknown]
  - Withdrawal syndrome [Unknown]
  - Hyperhidrosis [Unknown]
  - Abdominal pain [Recovered/Resolved]
  - Diarrhoea [Recovered/Resolved]
  - Tachycardia [Recovered/Resolved]
  - Drug abuse [Unknown]
